FAERS Safety Report 5008820-X (Version None)
Quarter: 2006Q2

REPORT INFORMATION
  Report Type: 
  Country: None (occurrence: None)
  Receive Date: 20060518
  Receipt Date: 20060515
  Transmission Date: 20061013
  Serious: Yes (Hospitalization, Other)
  Sender: FDA-Public Use
  Company Number: GBWYE601004MAY06

PATIENT
  Age: 39 Year
  Sex: Female

DRUGS (2)
  1. EFFEXOR XR [Suspect]
     Indication: DEPRESSION
     Dosage: 75 MG 2X PER 1 DAY, ORAL
     Route: 048
     Dates: start: 20041130
  2. DEPAKOTE 9VALPROATE SEMISODIUM) [Concomitant]

REACTIONS (1)
  - TRANSIENT ISCHAEMIC ATTACK [None]
